FAERS Safety Report 25702886 (Version 1)
Quarter: 2025Q3

REPORT INFORMATION
  Report Type: Report from Study
  Country: US (occurrence: US)
  Receive Date: 20250819
  Receipt Date: 20250819
  Transmission Date: 20251020
  Serious: Yes (Hospitalization, Other)
  Sender: ALEXION PHARMACEUTICALS
  Company Number: US-AstraZeneca-CH-00932425A

PATIENT
  Age: 70 Year
  Sex: Male
  Weight: 94.8 kg

DRUGS (2)
  1. TEZEPELUMAB [Suspect]
     Active Substance: TEZEPELUMAB
     Indication: Asthma
     Dosage: 210 MILLIGRAM PER MILLILITRE, Q4W
     Dates: start: 20250602
  2. TEZEPELUMAB [Suspect]
     Active Substance: TEZEPELUMAB

REACTIONS (5)
  - Oral mucosal eruption [Recovered/Resolved]
  - Stomatitis [Recovering/Resolving]
  - Stevens-Johnson syndrome [Recovering/Resolving]
  - Swollen tongue [Recovered/Resolved]
  - Asthma [Recovering/Resolving]

NARRATIVE: CASE EVENT DATE: 20250601
